FAERS Safety Report 17010326 (Version 2)
Quarter: 2019Q4

REPORT INFORMATION
  Report Type: Spontaneous
  Country: RO (occurrence: RO)
  Receive Date: 20191108
  Receipt Date: 20191111
  Transmission Date: 20200122
  Serious: Yes (Other)
  Sender: FDA-Public Use
  Company Number: RO-ROCHE-2468966

PATIENT
  Sex: Male

DRUGS (1)
  1. SOMATROPIN. [Suspect]
     Active Substance: SOMATROPIN
     Indication: BODY HEIGHT BELOW NORMAL
     Route: 065

REACTIONS (3)
  - Hypertrophic cardiomyopathy [Unknown]
  - Intentional product use issue [Unknown]
  - Off label use [Unknown]
